FAERS Safety Report 21968012 (Version 1)
Quarter: 2023Q1

REPORT INFORMATION
  Report Type: Spontaneous
  Country: NL (occurrence: NL)
  Receive Date: 20230208
  Receipt Date: 20230208
  Transmission Date: 20230418
  Serious: Yes (Life-Threatening)
  Sender: FDA-Public Use
  Company Number: None

PATIENT
  Sex: Male

DRUGS (2)
  1. OXAZEPAM [Suspect]
     Active Substance: OXAZEPAM
     Indication: Middle insomnia
     Dosage: 5 MILLIGRAM DAILY; 1DD ORAL 5MG   ,BRAND NAME NOT SPECIFIED
     Route: 048
     Dates: start: 20210101, end: 20210630
  2. ZOPICLONE [Suspect]
     Active Substance: ZOPICLONE
     Indication: Sleep disorder
     Dosage: 1DD  , BRAND NAME NOT SPECIFIED
     Dates: start: 20210101, end: 20210630

REACTIONS (1)
  - Respiratory arrest [Recovered/Resolved]
